FAERS Safety Report 8056154-1 (Version None)
Quarter: 2012Q1

REPORT INFORMATION
  Report Type: 
  Country: None (occurrence: None)
  Receive Date: 20120119
  Receipt Date: 20120111
  Transmission Date: 20120608
  Serious: Yes (Other)
  Sender: FDA-Public Use
  Company Number: US-BAYER-2012-005001

PATIENT
  Age: 58 Year
  Sex: Female
  Weight: 57 kg

DRUGS (1)
  1. ALEVE (CAPLET) [Suspect]
     Indication: MUSCLE STRAIN
     Dosage: 1 DF, ONCE
     Route: 048
     Dates: start: 20120111, end: 20120111

REACTIONS (1)
  - PHARYNGEAL OEDEMA [None]
